FAERS Safety Report 7447038-8 (Version None)
Quarter: 2011Q2

REPORT INFORMATION
  Report Type: 
  Country: None (occurrence: None)
  Receive Date: 20110421
  Receipt Date: 20110413
  Transmission Date: 20111010
  Serious: Yes (Death)
  Sender: FDA-Public Use
  Company Number: UTC-006330

PATIENT
  Age: 72 Year
  Sex: Female

DRUGS (2)
  1. DIURETICS (DIURETICS) [Concomitant]
  2. REMODULIN [Suspect]
     Dosage: 115.2 UG/KG (0.08 UG/KG, 1 IN 1 MIN, INTRAVENOUS
     Route: 042
     Dates: start: 20090901

REACTIONS (1)
  - DEATH [None]
